FAERS Safety Report 5622518-6 (Version None)
Quarter: 2008Q1

REPORT INFORMATION
  Report Type: 
  Country: None (occurrence: None)
  Receive Date: 20080211
  Receipt Date: 20080201
  Transmission Date: 20080703
  Serious: Yes (Hospitalization, Other)
  Sender: FDA-Public Use
  Company Number: US-PFIZER INC-2008010987

PATIENT
  Sex: Female
  Weight: 104.3 kg

DRUGS (2)
  1. BEXTRA [Suspect]
     Indication: PAIN
  2. BEXTRA [Suspect]
     Indication: ARTHROPATHY

REACTIONS (1)
  - STEVENS-JOHNSON SYNDROME [None]
